FAERS Safety Report 23188670 (Version 1)
Quarter: 2023Q4

REPORT INFORMATION
  Report Type: Spontaneous
  Country: US (occurrence: US)
  Receive Date: 20231115
  Receipt Date: 20231115
  Transmission Date: 20240109
  Serious: No
  Sender: FDA-Public Use
  Company Number: US-PFIZER INC-202300359451

PATIENT
  Age: 52 Year
  Sex: Female

DRUGS (17)
  1. XELJANZ XR [Suspect]
     Active Substance: TOFACITINIB CITRATE
     Dosage: 11 MG, DAILY
     Route: 048
     Dates: start: 202306
  2. VITAMIN D3 [Concomitant]
     Active Substance: CHOLECALCIFEROL
  3. HYDROCHLOROTHIAZIDE [Concomitant]
     Active Substance: HYDROCHLOROTHIAZIDE
  4. CYCLOBENZAPRINE HYDROCHLORIDE [Concomitant]
     Active Substance: CYCLOBENZAPRINE HYDROCHLORIDE
  5. FOLIC ACID [Concomitant]
     Active Substance: FOLIC ACID
  6. LEVOTHYROXINE SODIUM [Concomitant]
     Active Substance: LEVOTHYROXINE SODIUM
  7. PREDNISONE [Concomitant]
     Active Substance: PREDNISONE
  8. GABAPENTIN [Concomitant]
     Active Substance: GABAPENTIN
  9. NYSTOP [Concomitant]
     Active Substance: NYSTATIN
     Dosage: 100000/
  10. ROSUVASTATIN CALCIUM [Concomitant]
     Active Substance: ROSUVASTATIN CALCIUM
  11. BUPROPION HYDROCHLORIDE SR [Concomitant]
     Active Substance: BUPROPION HYDROCHLORIDE
     Dosage: UNK
  12. FLUOXETINE HYDROCHLORIDE [Concomitant]
     Active Substance: FLUOXETINE HYDROCHLORIDE
  13. PREGABALIN [Concomitant]
     Active Substance: PREGABALIN
  14. CELECOXIB [Concomitant]
     Active Substance: CELECOXIB
  15. DIAZEPAM [Concomitant]
     Active Substance: DIAZEPAM
  16. METAXALONE [Concomitant]
     Active Substance: METAXALONE
  17. HYDROMORPHONE HCL [Concomitant]
     Active Substance: HYDROMORPHONE HYDROCHLORIDE

REACTIONS (1)
  - Drug ineffective [Not Recovered/Not Resolved]
